FAERS Safety Report 20628885 (Version 1)
Quarter: 2022Q1

REPORT INFORMATION
  Report Type: Spontaneous
  Country: JP (occurrence: JP)
  Receive Date: 20220323
  Receipt Date: 20220323
  Transmission Date: 20220423
  Serious: Yes (Life-Threatening, Other)
  Sender: FDA-Public Use
  Company Number: JP-PFIZER INC-202200412031

PATIENT
  Age: 6 Decade
  Sex: Male

DRUGS (2)
  1. DEXMEDETOMIDINE HYDROCHLORIDE [Suspect]
     Active Substance: DEXMEDETOMIDINE HYDROCHLORIDE
     Indication: Sedation
     Dosage: UNK
  2. MIDAZOLAM [Suspect]
     Active Substance: MIDAZOLAM
     Indication: Sedation
     Dosage: UNK

REACTIONS (3)
  - Bradycardia [Recovered/Resolved]
  - Hypotension [Recovered/Resolved]
  - Cardio-respiratory arrest [Recovered/Resolved]
